FAERS Safety Report 5288420-7 (Version None)
Quarter: 2007Q2

REPORT INFORMATION
  Report Type: 
  Country: None (occurrence: None)
  Receive Date: 20070405
  Receipt Date: 20070402
  Transmission Date: 20071010
  Serious: Yes (Disabling)
  Sender: FDA-Public Use
  Company Number: BE-MERCK-0608BEL00025

PATIENT
  Age: 62 Year
  Sex: Male
  Weight: 69 kg

DRUGS (6)
  1. HYZAAR [Suspect]
     Indication: HYPERTENSION
     Route: 048
     Dates: start: 20050504
  2. FUROSEMIDE [Concomitant]
     Indication: HYPERTENSION
     Route: 048
     Dates: start: 20050722
  3. TILDIEM [Concomitant]
     Indication: HYPERTENSION
     Route: 048
     Dates: start: 20050722
  4. VASEXTEN [Concomitant]
     Indication: HYPERTENSION
     Route: 048
     Dates: start: 20051229
  5. ZESTORETIC [Concomitant]
     Indication: HYPERTENSION
     Route: 048
     Dates: start: 20051224
  6. OLMESARTAN MEDOXOMIL [Concomitant]
     Indication: HYPERTENSION
     Route: 048
     Dates: start: 20060804

REACTIONS (2)
  - DIABETIC RETINOPATHY [None]
  - PERIPHERAL VASCULAR DISORDER [None]
